FAERS Safety Report 4342513-7 (Version None)
Quarter: 2004Q2

REPORT INFORMATION
  Report Type: 
  Country: None (occurrence: None)
  Receive Date: 20040414
  Receipt Date: 20040330
  Transmission Date: 20050107
  Serious: Yes (Hospitalization)
  Sender: FDA-Public Use
  Company Number: 601190

PATIENT
  Age: 61 Year
  Sex: Female
  Weight: 104.3273 kg

DRUGS (1)
  1. GAMMAGARD S/D [Suspect]
     Indication: OPTIC ATROPHY
     Dosage: 40 GM; QM; INTRAVENOUS
     Route: 042
     Dates: start: 20040105, end: 20040105

REACTIONS (3)
  - BRAIN STEM INFARCTION [None]
  - DYSARTHRIA [None]
  - INFUSION SITE PHLEBITIS [None]
